FAERS Safety Report 16340078 (Version 7)
Quarter: 2024Q4

REPORT INFORMATION
  Report Type: Spontaneous
  Country: CA (occurrence: CA)
  Receive Date: 20190521
  Receipt Date: 20241122
  Transmission Date: 20250115
  Serious: Yes (Death, Hospitalization)
  Sender: CSL BEHRING
  Company Number: CA-BEH-2019102482

PATIENT
  Age: 71 Year
  Sex: Male

DRUGS (2)
  1. ALBUREX [Suspect]
     Active Substance: ALBUMIN HUMAN
     Indication: Product used for unknown indication
     Dosage: 100 ML (1 VIAL), TOT
     Route: 042
     Dates: start: 20190108, end: 20190108
  2. ALBUREX [Suspect]
     Active Substance: ALBUMIN HUMAN
     Dosage: 100 ML
     Route: 042

REACTIONS (8)
  - Febrile nonhaemolytic transfusion reaction [Fatal]
  - Multiple organ dysfunction syndrome [Fatal]
  - Pyrexia [Fatal]
  - Chills [Fatal]
  - Tachycardia [Fatal]
  - Abdominal pain [Fatal]
  - Hypertension [Fatal]
  - Tachypnoea [Fatal]

NARRATIVE: CASE EVENT DATE: 20190108
